FAERS Safety Report 6028875-3 (Version None)
Quarter: 2009Q1

REPORT INFORMATION
  Report Type: 
  Country: None (occurrence: None)
  Receive Date: 20090106
  Receipt Date: 20081230
  Transmission Date: 20090719
  Serious: Yes (Hospitalization, Disabling)
  Sender: FDA-Public Use
  Company Number: US-MERCK-0805USA00407

PATIENT
  Age: 82 Year
  Sex: Female
  Weight: 54 kg

DRUGS (2)
  1. FOSAMAX [Suspect]
     Indication: OSTEOPOROSIS
     Route: 048
     Dates: start: 20021001, end: 20070601
  2. SYNTHROID [Concomitant]
     Indication: HYPOTHYROIDISM
     Route: 065
     Dates: start: 20020101

REACTIONS (21)
  - ABDOMINAL HERNIA [None]
  - ANAEMIA POSTOPERATIVE [None]
  - BURSITIS [None]
  - CERUMEN IMPACTION [None]
  - DENTAL CARIES [None]
  - DRUG HYPERSENSITIVITY [None]
  - HERNIA OBSTRUCTIVE [None]
  - HYPERTENSION [None]
  - IMPAIRED HEALING [None]
  - INGUINAL HERNIA [None]
  - INTENTION TREMOR [None]
  - JAW DISORDER [None]
  - OEDEMA PERIPHERAL [None]
  - ORAL FUNGAL INFECTION [None]
  - OSTEOARTHRITIS [None]
  - OSTEONECROSIS [None]
  - PERIODONTAL INFECTION [None]
  - RESORPTION BONE INCREASED [None]
  - TOE AMPUTATION [None]
  - TOOTH DEPOSIT [None]
  - WITHDRAWAL SYNDROME [None]
